FAERS Safety Report 9248944 (Version 4)
Quarter: 2014Q3

REPORT INFORMATION
  Report Type: Spontaneous
  Country: US (occurrence: US)
  Receive Date: 20130423
  Receipt Date: 20140908
  Transmission Date: 20150326
  Serious: Yes (Disabling)
  Sender: FDA-Public Use
  Company Number: US-009507513-1304USA013903

PATIENT
  Sex: Male
  Weight: 86.17 kg

DRUGS (4)
  1. PROSCAR [Suspect]
     Active Substance: FINASTERIDE
     Indication: PROPHYLAXIS
     Dosage: UNK
     Route: 048
     Dates: end: 201204
  2. FINASTERIDE. [Suspect]
     Active Substance: FINASTERIDE
     Indication: ANDROGENETIC ALOPECIA
     Dosage: 1 MG, UNK
     Route: 048
     Dates: end: 201204
  3. FINASTERIDE. [Suspect]
     Active Substance: FINASTERIDE
     Dosage: 5 MG, QD
     Route: 048
     Dates: start: 20060909, end: 20120415
  4. PROSCAR [Suspect]
     Active Substance: FINASTERIDE
     Indication: ANDROGENETIC ALOPECIA
     Dosage: 1 MG, DAILY
     Route: 048
     Dates: end: 201204

REACTIONS (20)
  - Testicular pain [Unknown]
  - Injury [Unknown]
  - Loss of libido [Not Recovered/Not Resolved]
  - Sunburn [Unknown]
  - Umbilical hernia [Unknown]
  - Benign prostatic hyperplasia [Not Recovered/Not Resolved]
  - Sexual dysfunction [Not Recovered/Not Resolved]
  - Drug administration error [Unknown]
  - Testicular cyst [Unknown]
  - Epididymal cyst [Unknown]
  - Ejaculation disorder [Unknown]
  - Back injury [Not Recovered/Not Resolved]
  - Incorrect dose administered [Unknown]
  - Semen volume decreased [Unknown]
  - Penis injury [Unknown]
  - Spermatocele [Unknown]
  - Erectile dysfunction [Not Recovered/Not Resolved]
  - Sensory loss [Unknown]
  - Brain injury [Unknown]
  - Hypertension [Unknown]

NARRATIVE: CASE EVENT DATE: 1996
